FAERS Safety Report 12478866 (Version 1)
Quarter: 2016Q2

REPORT INFORMATION
  Report Type: Spontaneous
  Country: US (occurrence: US)
  Receive Date: 20160620
  Receipt Date: 20160620
  Transmission Date: 20160815
  Serious: No
  Sender: FDA-Public Use
  Company Number: US-AUROBINDO-AUR-APU-2016-04913

PATIENT
  Sex: Female

DRUGS (1)
  1. CIPROFLOXACIN TABLETS USP 250 MG [Suspect]
     Active Substance: CIPROFLOXACIN
     Indication: CYSTITIS
     Dosage: 4 PILLS A DAY
     Route: 065

REACTIONS (5)
  - Abdominal distension [Unknown]
  - Wheezing [Unknown]
  - Product formulation issue [None]
  - Abdominal discomfort [Unknown]
  - Flatulence [Unknown]
